FAERS Safety Report 22373723 (Version 1)
Quarter: 2023Q2

REPORT INFORMATION
  Report Type: Spontaneous
  Country: US (occurrence: None)
  Receive Date: 20230526
  Receipt Date: 20230526
  Transmission Date: 20230721
  Serious: No
  Sender: FDA-Public Use
  Company Number: None

PATIENT
  Age: 62 Year
  Sex: Male

DRUGS (1)
  1. XELODA [Suspect]
     Active Substance: CAPECITABINE
     Indication: Oesophageal carcinoma
     Dosage: FREQUENCY : TWICE A DAY;?
     Route: 048

REACTIONS (7)
  - Neuropathy peripheral [None]
  - Paraesthesia oral [None]
  - Dehydration [None]
  - Ageusia [None]
  - Malaise [None]
  - Nausea [None]
  - Off label use [None]

NARRATIVE: CASE EVENT DATE: 20230501
